FAERS Safety Report 4556104-6 (Version None)
Quarter: 2005Q1

REPORT INFORMATION
  Report Type: 
  Country: None (occurrence: None)
  Receive Date: 20050113
  Receipt Date: 20050105
  Transmission Date: 20050727
  Serious: Yes (Other)
  Sender: FDA-Public Use
  Company Number: 2004242368JP

PATIENT
  Age: 62 Year
  Sex: Female

DRUGS (12)
  1. IRINOTECAN HCL [Suspect]
     Indication: COLORECTAL CANCER
     Dosage: 231 MG, INTRAVENOUS
     Route: 042
     Dates: start: 20041014, end: 20041014
  2. TEGAFUR URACIL (TEGAFUR URACIL) [Concomitant]
  3. POLYSACCHARIDE-K (POLYSACCHARIDE-K) [Concomitant]
  4. LOXOPROFEN SODIUM (LOXOPROFEN SODIUM) [Concomitant]
  5. AZASETRON HYDROCHLORIDE (AZASETRON HYDROCHLORIDE) [Concomitant]
  6. ASPARTATE POTASSIUM (ASPARTATE POTASSIUM) [Concomitant]
  7. SODIUM CHLORIDE 0.9% [Concomitant]
  8. LOPERAMIDE HYDROCHLORIDE [Concomitant]
  9. MARZULENE S (LEVOGLUTAMIDE, SODIUM GUALENATE) [Concomitant]
  10. ETIZOLAM (ETIZOLAM) [Concomitant]
  11. FAMOTIDINE [Concomitant]
  12. DICLOFENAC SODIUM [Concomitant]

REACTIONS (6)
  - BLOOD POTASSIUM DECREASED [None]
  - ELECTROLYTE IMBALANCE [None]
  - INAPPROPRIATE ANTIDIURETIC HORMONE SECRETION [None]
  - LEUKOPENIA [None]
  - NEUTROPENIA [None]
  - URINE OSMOLARITY DECREASED [None]
